FAERS Safety Report 4777346-0 (Version None)
Quarter: 2005Q3

REPORT INFORMATION
  Report Type: 
  Country: None (occurrence: None)
  Receive Date: 20050923
  Receipt Date: 20011107
  Transmission Date: 20060218
  Serious: Yes (Other)
  Sender: FDA-Public Use
  Company Number: US-ABBOTT-01P-163-0180195-00

PATIENT
  Sex: Male
  Weight: 88.3 kg

DRUGS (1)
  1. SIBUTRAMINE [Suspect]
     Indication: OBESITY
     Route: 048
     Dates: start: 20001111, end: 20011103

REACTIONS (1)
  - ELECTROCARDIOGRAM QT PROLONGED [None]
